FAERS Safety Report 20404884 (Version 4)
Quarter: 2022Q1

REPORT INFORMATION
  Report Type: Report from Study
  Country: GB (occurrence: GB)
  Receive Date: 20220131
  Receipt Date: 20220303
  Transmission Date: 20220423
  Serious: Yes (Death, Hospitalization, Other)
  Sender: FDA-Public Use
  Company Number: GB-NOVARTISPH-NVSC2021GB261116

PATIENT
  Age: 58 Year
  Sex: Female

DRUGS (2)
  1. KISQALI [Suspect]
     Active Substance: RIBOCICLIB
     Indication: Breast cancer metastatic
     Dosage: 600 MG, QD
     Route: 048
     Dates: start: 20211029
  2. KISQALI [Suspect]
     Active Substance: RIBOCICLIB
     Dosage: 200 MG, OTHER (21 DAYS OUT OF 30)
     Route: 048

REACTIONS (5)
  - Death [Fatal]
  - Illness [Unknown]
  - Electrocardiogram QT prolonged [Unknown]
  - Neutrophil count decreased [Recovered/Resolved]
  - Oedema peripheral [Unknown]

NARRATIVE: CASE EVENT DATE: 20211112
